FAERS Safety Report 19734504 (Version 1)
Quarter: 2021Q3

REPORT INFORMATION
  Report Type: Other
  Country: CA (occurrence: CA)
  Receive Date: 20210824
  Receipt Date: 20210824
  Transmission Date: 20211014
  Serious: Yes (Hospitalization)
  Sender: FDA-Public Use
  Company Number: CA-CELLTRION INC.-2021CA011208

PATIENT

DRUGS (12)
  1. DIPHENHYDRAMINE. [Concomitant]
     Active Substance: DIPHENHYDRAMINE
     Indication: PREMEDICATION
  2. MODAFINIL. [Concomitant]
     Active Substance: MODAFINIL
  3. RITUXIMAB (UNKNOWN) [Suspect]
     Active Substance: RITUXIMAB
     Indication: MULTIPLE SCLEROSIS
     Dosage: 1000 MG
     Route: 042
  4. CRANBERRY. [Concomitant]
     Active Substance: CRANBERRY
  5. VITAMIN C [Concomitant]
     Active Substance: ASCORBIC ACID
  6. VORTIOXETINE. [Concomitant]
     Active Substance: VORTIOXETINE
  7. LYRICA [Concomitant]
     Active Substance: PREGABALIN
     Indication: PREMEDICATION
  8. METHYLPREDNISOLONE. [Concomitant]
     Active Substance: METHYLPREDNISOLONE
  9. CALCIUM [Concomitant]
     Active Substance: CALCIUM
  10. ACETAMINOPHEN. [Concomitant]
     Active Substance: ACETAMINOPHEN
     Indication: PREMEDICATION
  11. BACLOFEN. [Concomitant]
     Active Substance: BACLOFEN
  12. ERGOCALCIFEROL. [Concomitant]
     Active Substance: ERGOCALCIFEROL

REACTIONS (2)
  - Localised infection [Recovered/Resolved]
  - Off label use [Unknown]
